FAERS Safety Report 7998621-2 (Version None)
Quarter: 2011Q4

REPORT INFORMATION
  Report Type: 
  Country: None (occurrence: None)
  Receive Date: 20111221
  Receipt Date: 20111214
  Transmission Date: 20120403
  Serious: Yes (Other)
  Sender: FDA-Public Use
  Company Number: PHHY2011BR109210

PATIENT

DRUGS (2)
  1. CEFTRIAXONE [Suspect]
     Dosage: UNK
     Route: 064
  2. METAMIZOLE [Suspect]
     Dosage: UNK
     Route: 064

REACTIONS (4)
  - FOETAL GROWTH RESTRICTION [None]
  - FOETAL EXPOSURE DURING PREGNANCY [None]
  - FOETAL DISORDER [None]
  - TACHYCARDIA FOETAL [None]
